FAERS Safety Report 7650895-3 (Version None)
Quarter: 2011Q3

REPORT INFORMATION
  Report Type: 
  Country: None (occurrence: None)
  Receive Date: 20110802
  Receipt Date: 20110726
  Transmission Date: 20111222
  Serious: Yes (Hospitalization)
  Sender: FDA-Public Use
  Company Number: US-BAYER-2011-065995

PATIENT
  Age: 76 Year
  Sex: Female

DRUGS (6)
  1. SERTRALINE HYDROCHLORIDE [Concomitant]
  2. JANTOVEN [Concomitant]
  3. VYTORIN [Concomitant]
  4. LORAZEPAM [Concomitant]
  5. AVELOX [Suspect]
     Dosage: UNK
     Route: 048
     Dates: start: 20110701, end: 20110701
  6. LISINOPRIL [Concomitant]

REACTIONS (2)
  - NAUSEA [None]
  - DIZZINESS [None]
